FAERS Safety Report 7624201-4 (Version None)
Quarter: 2011Q3

REPORT INFORMATION
  Report Type: 
  Country: None (occurrence: None)
  Receive Date: 20110712
  Receipt Date: 20110630
  Transmission Date: 20111222
  Serious: Yes (Other)
  Sender: FDA-Public Use
  Company Number: 1000021976

PATIENT
  Age: 59 Year
  Sex: Male

DRUGS (2)
  1. KARDEGIC (ACETYLSALICYLATE LYSINE)(ACETYLSALICYLATE [Concomitant]
  2. NEBIVOLOL HCL [Suspect]
     Indication: HYPERTENSION
     Dosage: 5 MG (5 MG, 1 IN 1 D),ORAL
     Route: 048
     Dates: start: 20100301, end: 20110501

REACTIONS (2)
  - MACULAR OEDEMA [None]
  - MACULOPATHY [None]
